FAERS Safety Report 8807334 (Version 1)
Quarter: 2012Q4

REPORT INFORMATION
  Report Type: 
  Country: JP (occurrence: JP)
  Receive Date: 20120925
  Receipt Date: 20120925
  Transmission Date: 20130627
  Serious: Yes (Death)
  Sender: FDA-Public Use
  Company Number: JP-WATSON-2012-16268

PATIENT
  Age: 48 Year
  Sex: Male

DRUGS (6)
  1. TACROLIMUS (UNKNOWN) [Suspect]
     Indication: IMMUNOSUPPRESSION
     Dosage: UNK
     Route: 065
  2. MYCOPHENOLATE MOFETIL (UNKNOWN) [Suspect]
     Indication: IMMUNOSUPPRESSION
     Dosage: UNK
     Route: 065
  3. PREDNISOLONE (UNKNOWN) [Suspect]
     Indication: IMMUNOSUPPRESSION
     Dosage: UNK
     Route: 065
  4. GIMERACIL [Suspect]
     Indication: PANCREATIC CARCINOMA
     Dosage: UNK
     Route: 065
  5. OTERACIL [Suspect]
     Indication: PANCREATIC CARCINOMA
     Dosage: UNK
     Route: 065
  6. TEGAFUR [Suspect]
     Indication: PANCREATIC CARCINOMA
     Dosage: UNK
     Route: 065

REACTIONS (5)
  - Pancreatic carcinoma metastatic [Fatal]
  - Metastases to peritoneum [Fatal]
  - Malignant ascites [Fatal]
  - Bile duct obstruction [Fatal]
  - Bone marrow failure [Fatal]
